FAERS Safety Report 6094705-7 (Version None)
Quarter: 2009Q1

REPORT INFORMATION
  Report Type: 
  Country: None (occurrence: None)
  Receive Date: 20090224
  Receipt Date: 20090212
  Transmission Date: 20090719
  Serious: Yes (Hospitalization, Disabling)
  Sender: FDA-Public Use
  Company Number: 2009AP000530

PATIENT
  Age: 26 Year
  Sex: Female

DRUGS (5)
  1. LAMOTRIGINE [Suspect]
     Indication: EPILEPSY
     Dosage: 500 MG;QD, PO
     Route: 048
     Dates: start: 19980101, end: 20081201
  2. CITALOPRAM HYDROBROMIDE [Concomitant]
  3. ETHINYL ESTRADIOL TAB [Concomitant]
  4. NORETHISTERONE ACETATE (NORETHISTERONE ACETATE) [Concomitant]
  5. MEBEVERINE (MEBEVERINE) [Concomitant]

REACTIONS (3)
  - CONDITION AGGRAVATED [None]
  - HALLUCINATION, VISUAL [None]
  - PSYCHOTIC DISORDER [None]
